FAERS Safety Report 7855998 (Version 2)
Quarter: 2013Q1

REPORT INFORMATION
  Report Type: Spontaneous
  Country: US (occurrence: US)
  Receive Date: 20110315
  Receipt Date: 20130125
  Transmission Date: 20140127
  Serious: Yes (Hospitalization, Other)
  Sender: FDA-Public Use
  Company Number: US-ELI_LILLY_AND_COMPANY-US201103003327

PATIENT
  Age: 39 Year
  Sex: Female

DRUGS (6)
  1. BYETTA [Suspect]
     Dosage: 10 UG, BID
     Route: 058
  2. ZIAC [Concomitant]
  3. LISINOPRIL                              /USA/ [Concomitant]
  4. CALCIUM CARBONATE [Concomitant]
  5. TYLENOL                                 /SCH/ [Concomitant]
  6. ADVIL                              /00109201/ [Concomitant]
     Dosage: UNK, PRN

REACTIONS (3)
  - Pancreatitis necrotising [Recovering/Resolving]
  - Cholecystitis chronic [Recovered/Resolved]
  - Cholelithiasis [Recovered/Resolved]
